FAERS Safety Report 23446275 (Version 1)
Quarter: 2024Q1

REPORT INFORMATION
  Report Type: Spontaneous
  Country: US (occurrence: None)
  Receive Date: 20240125
  Receipt Date: 20240125
  Transmission Date: 20240410
  Serious: Yes (Hospitalization)
  Sender: FDA-Public Use
  Company Number: None

PATIENT
  Age: 59 Year
  Sex: Female

DRUGS (10)
  1. AMBRISENTAN [Suspect]
     Active Substance: AMBRISENTAN
     Indication: Pulmonary arterial hypertension
     Dosage: 10MG QD ORAL?
     Route: 048
     Dates: start: 20210104
  2. TADALAFIL [Concomitant]
     Active Substance: TADALAFIL
  3. SELEXIPAG [Concomitant]
     Active Substance: SELEXIPAG
  4. APIXABAN [Concomitant]
  5. MIDODRINE [Concomitant]
  6. DILTIAZEM [Concomitant]
     Active Substance: DILTIAZEM
  7. SPIRONOLACTONE [Concomitant]
  8. PANTOPRAZOLE [Concomitant]
  9. FUROSEMIDE [Concomitant]
  10. aspirin [Concomitant]

REACTIONS (2)
  - Acute respiratory failure [None]
  - Breast operation [None]

NARRATIVE: CASE EVENT DATE: 20240104
